FAERS Safety Report 15919935 (Version 1)
Quarter: 2019Q1

REPORT INFORMATION
  Report Type: Spontaneous
  Country: US (occurrence: US)
  Receive Date: 20190205
  Receipt Date: 20190205
  Transmission Date: 20190417
  Serious: No
  Sender: FDA-Public Use
  Company Number: US-ROCHE-2071244

PATIENT
  Sex: Female

DRUGS (2)
  1. XOLAIR [Suspect]
     Active Substance: OMALIZUMAB
     Indication: URTICARIA
     Dosage: 300MG EVERY 4 WEEKS ;ONGOING: UNKNOWN
     Route: 058
     Dates: start: 201712
  2. XOLAIR [Suspect]
     Active Substance: OMALIZUMAB
     Indication: URTICARIA
     Dosage: 300MG EVERY 4 WEEKS ;ONGOING: UNKNOWN
     Route: 058
     Dates: start: 201706

REACTIONS (2)
  - Abdominal discomfort [Unknown]
  - Nausea [Unknown]
